FAERS Safety Report 9061702 (Version 1)
Quarter: 2013Q1

REPORT INFORMATION
  Report Type: Spontaneous
  Country: US (occurrence: None)
  Receive Date: 20130122
  Receipt Date: 20130122
  Transmission Date: 20140127
  Serious: Yes (Hospitalization)
  Sender: FDA-Public Use
  Company Number: 001442708A

PATIENT
  Age: 44 Year
  Sex: Female

DRUGS (2)
  1. MEANINGFUL BEAUTY ANTIOXIDANT DAY CREME SPF 20 [Suspect]
     Dosage: ONCE DERMAL
     Dates: start: 20120812
  2. MB* SKIN BRIGHT, DECOLLETE AND NECK TREAT. SPF 15 [Suspect]
     Dosage: ONCE DERMAL
     Dates: start: 20120812

REACTIONS (6)
  - Application site erythema [None]
  - Application site anaesthesia [None]
  - Application site pain [None]
  - Lip swelling [None]
  - Oedema mouth [None]
  - Speech disorder [None]
